FAERS Safety Report 8600261-9 (Version None)
Quarter: 2012Q3

REPORT INFORMATION
  Report Type: 
  Country: None (occurrence: None)
  Receive Date: 20120817
  Receipt Date: 20120809
  Transmission Date: 20120928
  Serious: No
  Sender: FDA-Public Use
  Company Number: US-BIOGENIDEC-2012BI030985

PATIENT
  Age: 22 Year
  Sex: Female

DRUGS (2)
  1. TYSABRI [Suspect]
     Indication: MULTIPLE SCLEROSIS
     Route: 042
     Dates: start: 20080603, end: 20110817
  2. TYSABRI [Suspect]
     Route: 042
     Dates: start: 20111020, end: 20120301

REACTIONS (4)
  - FATIGUE [None]
  - OPTIC NEURITIS [None]
  - HYPOAESTHESIA [None]
  - PARAESTHESIA [None]
